FAERS Safety Report 4366524-0 (Version None)
Quarter: 2004Q2

REPORT INFORMATION
  Report Type: 
  Country: None (occurrence: None)
  Receive Date: 20040527
  Receipt Date: 20040325
  Transmission Date: 20050107
  Serious: Yes (Hospitalization)
  Sender: FDA-Public Use
  Company Number: AU-ROCHE-362765

PATIENT
  Age: 47 Year
  Sex: Male
  Weight: 80 kg

DRUGS (9)
  1. PEGASYS [Suspect]
     Indication: HEPATITIS C
     Route: 058
     Dates: start: 20031113, end: 20031208
  2. RIBAVIRIN [Suspect]
     Indication: HEPATITIS C
     Route: 048
     Dates: start: 20031113, end: 20031208
  3. ZIDOVUDINE [Concomitant]
  4. NEVIRAPINE [Concomitant]
     Indication: HIV INFECTION
  5. NELFINAVIR [Concomitant]
     Indication: HIV INFECTION
  6. ASPIRIN [Concomitant]
     Route: 048
  7. METOPROLOL TARTRATE [Concomitant]
     Route: 048
  8. PRAVASTATIN [Concomitant]
     Route: 048
  9. VALCYTE [Concomitant]

REACTIONS (4)
  - BLOOD IMMUNOGLOBULIN G INCREASED [None]
  - CARDIOLIPIN ANTIBODY POSITIVE [None]
  - DEEP VEIN THROMBOSIS [None]
  - PROTEIN S DECREASED [None]
